FAERS Safety Report 7230784-9 (Version None)
Quarter: 2011Q1

REPORT INFORMATION
  Report Type: 
  Country: None (occurrence: None)
  Receive Date: 20110118
  Receipt Date: 20101229
  Transmission Date: 20110831
  Serious: No
  Sender: FDA-Public Use
  Company Number: US-B.I. PHARMACEUTICALS,INC./RIDGEFIELD-2011-BP-00304BP

PATIENT
  Sex: Female

DRUGS (15)
  1. PLAVIX [Concomitant]
     Dosage: 75 MG
     Route: 048
  2. LEVOTHYROXINE [Concomitant]
     Indication: HYPOTHYROIDISM
     Dosage: 0.05 MG
     Route: 048
  3. CALCIUM [Concomitant]
     Route: 048
  4. VITAMIN B-12 [Concomitant]
  5. AMIDARONE [Concomitant]
     Indication: HEART RATE IRREGULAR
     Dosage: 200 MG
     Route: 048
  6. TYLENOL EXTRA STRENGTH [Concomitant]
     Indication: ARTHRITIS
     Dosage: 1000 MG
     Route: 048
  7. METAMUCIL-2 [Concomitant]
     Indication: BOWEL MOVEMENT IRREGULARITY
     Route: 048
  8. DULCOLAX [Concomitant]
     Route: 048
  9. LISINOPRIL [Concomitant]
     Dosage: 10 MG
     Route: 048
  10. MULTI-VITAMIN [Concomitant]
     Route: 048
  11. ASPIRIN [Concomitant]
     Dosage: 81 MG
     Route: 048
  12. NEURONTIN [Concomitant]
     Indication: RESTLESS LEGS SYNDROME
     Dosage: 1200 MG
     Route: 048
  13. VITAMIN D [Concomitant]
     Dosage: 10000 U
     Route: 048
  14. PRADAXA [Suspect]
     Indication: ATRIAL FIBRILLATION
     Dosage: 300 MG
     Route: 048
     Dates: start: 20101221
  15. ZOCOR [Concomitant]
     Indication: BLOOD CHOLESTEROL INCREASED
     Dosage: 20 MG
     Route: 048

REACTIONS (2)
  - SWOLLEN TONGUE [None]
  - PNEUMONIA [None]
